FAERS Safety Report 9730396 (Version 1)
Quarter: 2013Q4

REPORT INFORMATION
  Report Type: Spontaneous
  Country: US (occurrence: US)
  Receive Date: 20131202
  Receipt Date: 20131202
  Transmission Date: 20140711
  Serious: Yes (Death)
  Sender: FDA-Public Use
  Company Number: PHEH2013US024820

PATIENT
  Age: 35 Year
  Sex: Female

DRUGS (1)
  1. TOBI PODHALER [Suspect]
     Indication: CYSTIC FIBROSIS
     Dosage: BID, (INHALE 4 CAPSULES, TWICE DAILY WITH A CYCLE OF 28 DAYS ON AND 28 DAYS OFF)
     Dates: start: 201307

REACTIONS (1)
  - Death [Fatal]
